FAERS Safety Report 6185603-9 (Version None)
Quarter: 2009Q2

REPORT INFORMATION
  Report Type: 
  Country: None (occurrence: None)
  Receive Date: 20090507
  Receipt Date: 20090427
  Transmission Date: 20091009
  Serious: Yes (Other)
  Sender: FDA-Public Use
  Company Number: CIP09001037

PATIENT
  Sex: Female

DRUGS (2)
  1. ACTONEL [Suspect]
     Indication: OSTEITIS DEFORMANS
     Dosage: 17.5 MG ONCE WEEKLY, ORAL
     Route: 048
     Dates: end: 20090403
  2. ACTONEL [Suspect]
     Indication: OSTEITIS DEFORMANS
     Dosage: 17.5 MG ONCE WEEKLY, ORAL
     Route: 048
     Dates: start: 20090401

REACTIONS (2)
  - HYPOCALCAEMIA [None]
  - TETANY [None]
